FAERS Safety Report 7510288-6 (Version None)
Quarter: 2011Q2

REPORT INFORMATION
  Report Type: 
  Country: None (occurrence: None)
  Receive Date: 20110527
  Receipt Date: 20110117
  Transmission Date: 20111010
  Serious: Yes (Other)
  Sender: FDA-Public Use
  Company Number: PHHY2011US04669

PATIENT
  Age: 36 Year
  Sex: Male

DRUGS (3)
  1. CYCLOSPORINE [Suspect]
     Indication: STEM CELL TRANSPLANT
  2. METHYLPREDNISOLONE [Suspect]
     Dosage: 1 MG/KG, DAILY
  3. RITUXIMAB [Concomitant]

REACTIONS (17)
  - HEPATIC FUNCTION ABNORMAL [None]
  - HYPOALBUMINAEMIA [None]
  - HYPERTENSION [None]
  - CHRONIC GRAFT VERSUS HOST DISEASE [None]
  - DRUG INTOLERANCE [None]
  - DIARRHOEA [None]
  - GLOMERULONEPHRITIS MEMBRANOUS [None]
  - OVERLAP SYNDROME [None]
  - DIABETES MELLITUS [None]
  - BLOOD CREATININE INCREASED [None]
  - ORAL PAIN [None]
  - RASH [None]
  - PROTEINURIA [None]
  - RENAL FAILURE [None]
  - GENERALISED OEDEMA [None]
  - PROTEIN URINE PRESENT [None]
  - NEPHROTIC SYNDROME [None]
